FAERS Safety Report 9682449 (Version 1)
Quarter: 2013Q4

REPORT INFORMATION
  Report Type: Spontaneous
  Country: US (occurrence: US)
  Receive Date: 20131112
  Receipt Date: 20131112
  Transmission Date: 20140711
  Serious: No
  Sender: FDA-Public Use
  Company Number: US-009507513-1311USA004057

PATIENT
  Sex: Female

DRUGS (2)
  1. FOSAMAX [Suspect]
     Indication: BONE DENSITY DECREASED
     Dosage: UNK, QW, SEVERAL YEARS AGO
     Route: 048
  2. LOVASTATIN [Concomitant]

REACTIONS (1)
  - Jaw disorder [Recovered/Resolved]
